FAERS Safety Report 6304113-9 (Version None)
Quarter: 2009Q3

REPORT INFORMATION
  Report Type: 
  Country: None (occurrence: None)
  Receive Date: 20090806
  Receipt Date: 20090729
  Transmission Date: 20100115
  Serious: Yes (Death, Hospitalization)
  Sender: FDA-Public Use
  Company Number: 2008AL010635

PATIENT
  Age: 85 Year
  Sex: Female

DRUGS (37)
  1. DIGOXIN [Suspect]
     Indication: CARDIAC FAILURE CHRONIC
     Dosage: 0.125MG, PO
     Route: 048
     Dates: start: 20050101, end: 20070301
  2. BUMEX [Concomitant]
  3. ISOSORBIDE [Concomitant]
  4. VITAMIN D [Concomitant]
  5. ARICEPT [Concomitant]
  6. PROTONIX [Concomitant]
  7. POTASSIUM CHLORIDE [Concomitant]
  8. METOLAZONE [Concomitant]
  9. LEVOTHYROXINE [Concomitant]
  10. OXYBUTYNIN [Concomitant]
  11. LEXAPRO [Concomitant]
  12. ALLOPURINOL [Concomitant]
  13. TOPROL-XL [Concomitant]
  14. ZYPREXA [Concomitant]
  15. SYNTHROID [Concomitant]
  16. ALLEGRO [Concomitant]
  17. DITROPAN [Concomitant]
  18. K-DUR [Concomitant]
  19. GENTAMICIN [Concomitant]
  20. ASPIRIN [Concomitant]
  21. ZYLOPRIM [Concomitant]
  22. ALTACE [Concomitant]
  23. PLAVIX [Concomitant]
  24. NIFEDIPINE [Concomitant]
  25. CEPHALEXIN [Concomitant]
  26. CIPROFLOXACIN [Concomitant]
  27. TRAMADOL [Concomitant]
  28. INDOMETHACIN [Concomitant]
  29. CITALOPRAM HYDROBROMIDE [Concomitant]
  30. FUROSEMIDE [Concomitant]
  31. SENNA [Concomitant]
  32. FERROUS SULFATE TAB [Concomitant]
  33. BETAMETHASONE [Concomitant]
  34. ZOVIRAX [Concomitant]
  35. ACETAZOLAMIDE [Concomitant]
  36. BUMETANIDE [Concomitant]
  37. PROPOXY [Concomitant]

REACTIONS (52)
  - ANAEMIA [None]
  - ANHEDONIA [None]
  - ARTERIOSCLEROSIS CORONARY ARTERY [None]
  - ASTHENIA [None]
  - BLINDNESS UNILATERAL [None]
  - BLOOD PRESSURE SYSTOLIC DECREASED [None]
  - BLOOD PRESSURE SYSTOLIC INCREASED [None]
  - CARDIAC ARREST [None]
  - CARDIAC FAILURE CONGESTIVE [None]
  - CARDIOACTIVE DRUG LEVEL INCREASED [None]
  - CEREBRAL INFARCTION [None]
  - CEREBROVASCULAR ACCIDENT [None]
  - COLITIS ISCHAEMIC [None]
  - COMA [None]
  - CONFUSIONAL STATE [None]
  - CONJUNCTIVITIS [None]
  - DECREASED APPETITE [None]
  - DEHYDRATION [None]
  - DEMENTIA [None]
  - DEPRESSED LEVEL OF CONSCIOUSNESS [None]
  - DISORIENTATION [None]
  - DIVERTICULUM [None]
  - DIZZINESS [None]
  - ECONOMIC PROBLEM [None]
  - FALL [None]
  - GAIT DISTURBANCE [None]
  - GASTROINTESTINAL HAEMORRHAGE [None]
  - HAEMORRHAGE [None]
  - HYPOTENSION [None]
  - HYPOVOLAEMIA [None]
  - ILL-DEFINED DISORDER [None]
  - IMPAIRED WORK ABILITY [None]
  - LARGE INTESTINAL ULCER [None]
  - LETHARGY [None]
  - MACULAR DEGENERATION [None]
  - MENTAL DISORDER [None]
  - MOBILITY DECREASED [None]
  - NAUSEA [None]
  - ONYCHOLYSIS [None]
  - ONYCHOMYCOSIS [None]
  - PAIN [None]
  - PALLOR [None]
  - PERIPHERAL VASCULAR DISORDER [None]
  - PRURITUS [None]
  - PULSE ABSENT [None]
  - RENAL FAILURE [None]
  - RESPIRATORY ARREST [None]
  - SKIN TURGOR DECREASED [None]
  - SKIN ULCER [None]
  - THERAPEUTIC AGENT TOXICITY [None]
  - THROMBOSIS [None]
  - VOMITING [None]
